FAERS Safety Report 13939706 (Version 1)
Quarter: 2017Q3

REPORT INFORMATION
  Report Type: Spontaneous
  Country: US (occurrence: US)
  Receive Date: 20170906
  Receipt Date: 20170906
  Transmission Date: 20171127
  Serious: Yes (Hospitalization, Other)
  Sender: FDA-Public Use
  Company Number: US-ZYDUS-016314

PATIENT
  Age: 28 Year
  Sex: Female

DRUGS (6)
  1. PREDNISONE. [Concomitant]
     Active Substance: PREDNISONE
     Indication: INFECTION
     Route: 065
  2. VANCOMYCIN [Suspect]
     Active Substance: VANCOMYCIN
     Indication: PRODUCT USED FOR UNKNOWN INDICATION
     Route: 065
  3. LEVOFLOXACIN. [Suspect]
     Active Substance: LEVOFLOXACIN
     Indication: INFECTION
     Route: 065
  4. DOXYCYCLINE. [Suspect]
     Active Substance: DOXYCYCLINE
     Indication: PRODUCT USED FOR UNKNOWN INDICATION
     Route: 065
  5. CEFTRIAXONE. [Suspect]
     Active Substance: CEFTRIAXONE
     Indication: PRODUCT USED FOR UNKNOWN INDICATION
     Route: 065
  6. MEROPENEM. [Suspect]
     Active Substance: MEROPENEM
     Indication: PRODUCT USED FOR UNKNOWN INDICATION
     Route: 065

REACTIONS (27)
  - Lymphadenopathy [Recovered/Resolved]
  - Blood fibrinogen decreased [Recovered/Resolved]
  - Rash maculo-papular [Recovered/Resolved]
  - Platelet count decreased [Recovered/Resolved]
  - Histiocytosis haematophagic [Recovered/Resolved]
  - Chills [Recovered/Resolved]
  - Hepatitis [Recovered/Resolved]
  - Hypotension [Recovered/Resolved]
  - Eosinophilia [Recovered/Resolved]
  - Oropharyngeal pain [Recovered/Resolved]
  - Rash morbilliform [Recovered/Resolved]
  - Pallor [Recovered/Resolved]
  - Dyspnoea [Recovered/Resolved]
  - Transaminases increased [Recovered/Resolved]
  - Swelling face [Recovered/Resolved]
  - Drug reaction with eosinophilia and systemic symptoms [Recovered/Resolved]
  - Condition aggravated [Recovered/Resolved]
  - Arthralgia [Recovered/Resolved]
  - Leukocytosis [Recovered/Resolved]
  - Jaundice [Recovered/Resolved]
  - Rash generalised [Recovered/Resolved]
  - Tachycardia [Recovered/Resolved]
  - Pyrexia [Recovered/Resolved]
  - Haemoglobin decreased [Recovered/Resolved]
  - Interleukin-2 receptor increased [Recovered/Resolved]
  - Haemoptysis [Recovered/Resolved]
  - Hepatomegaly [Recovered/Resolved]
